FAERS Safety Report 10270611 (Version 1)
Quarter: 2014Q3

REPORT INFORMATION
  Report Type: Spontaneous
  Country: US (occurrence: US)
  Receive Date: 20140701
  Receipt Date: 20140701
  Transmission Date: 20150326
  Serious: Yes (Other)
  Sender: FDA-Public Use
  Company Number: US-ROCHE-1426825

PATIENT
  Age: 44 Year
  Sex: Male

DRUGS (2)
  1. GANCICLOVIR [Suspect]
     Active Substance: GANCICLOVIR
     Indication: CYTOMEGALOVIRUS CHORIORETINITIS
     Dosage: 400 UG/0.1ML
     Route: 050
  2. GANCICLOVIR [Suspect]
     Active Substance: GANCICLOVIR
     Dosage: 40 MG/0.1ML
     Route: 050

REACTIONS (3)
  - Overdose [Unknown]
  - Retinal haemorrhage [Not Recovered/Not Resolved]
  - Retinal injury [Not Recovered/Not Resolved]
